FAERS Safety Report 7773552-1 (Version None)
Quarter: 2011Q3

REPORT INFORMATION
  Report Type: 
  Country: None (occurrence: None)
  Receive Date: 20110922
  Receipt Date: 20110912
  Transmission Date: 20111222
  Serious: Yes (Other)
  Sender: FDA-Public Use
  Company Number: DE-BRISTOL-MYERS SQUIBB COMPANY-16055667

PATIENT
  Age: 70 Year
  Sex: Male

DRUGS (3)
  1. METHYLPREDNISOLONE [Suspect]
     Indication: DERMATOMYOSITIS
     Dosage: TAPERING DOSES
     Route: 048
  2. DEXAMETHASONE [Suspect]
     Indication: DERMATOMYOSITIS
     Dosage: ON DAYS 1-3 NO OF COURSES:3
     Route: 042
  3. CYCLOPHOSPHAMIDE [Suspect]
     Indication: DERMATOMYOSITIS
     Dosage: INTERVALS OF 2-4 WEEKS NO OF CYCLES:3 INTERVAL THERAPY 50 MG-ORAL
     Route: 042

REACTIONS (1)
  - MYOPATHY [None]
